FAERS Safety Report 12165381 (Version 2)
Quarter: 2016Q1

REPORT INFORMATION
  Report Type: Report from Study
  Country: FR (occurrence: FR)
  Receive Date: 20160309
  Receipt Date: 20160311
  Transmission Date: 20160526
  Serious: Yes (Death)
  Sender: FDA-Public Use
  Company Number: FR-TOLMAR, INC.-2016FR002199

PATIENT
  Age: 84 Year
  Sex: Male
  Weight: 72 kg

DRUGS (1)
  1. ELIGARD [Suspect]
     Active Substance: LEUPROLIDE ACETATE
     Indication: PROSTATE CANCER METASTATIC
     Dosage: 22.5 MG, UNK
     Route: 065
     Dates: start: 20150923

REACTIONS (2)
  - Intestinal obstruction [Fatal]
  - Tumour invasion [Fatal]

NARRATIVE: CASE EVENT DATE: 20151201
